FAERS Safety Report 5425949-2 (Version None)
Quarter: 2007Q3

REPORT INFORMATION
  Report Type: 
  Country: None (occurrence: None)
  Receive Date: 20070824
  Receipt Date: 20070824
  Transmission Date: 20080115
  Serious: Yes (Other)
  Sender: FDA-Public Use
  Company Number: None

PATIENT

DRUGS (2)
  1. NEURONTIN [Suspect]
     Indication: PAIN IN EXTREMITY
     Dosage: TABLETS  ONCE A DAY  ENDOTRACHEA
     Route: 007
     Dates: start: 20070423, end: 20070818
  2. NEURONTIN [Suspect]

REACTIONS (2)
  - MEDICATION ERROR [None]
  - WRONG DRUG ADMINISTERED [None]
